FAERS Safety Report 16894311 (Version 8)
Quarter: 2020Q1

REPORT INFORMATION
  Report Type: Report from Study
  Country: CA (occurrence: CA)
  Receive Date: 20191008
  Receipt Date: 20200121
  Transmission Date: 20200409
  Serious: No
  Sender: FDA-Public Use
  Company Number: CA-BEH-2019107552

PATIENT
  Age: 72 Year
  Sex: Female
  Weight: 40 kg

DRUGS (29)
  1. HIZENTRA [Suspect]
     Active Substance: HUMAN IMMUNOGLOBULIN G
     Dosage: UNK
     Route: 058
  2. TUDORZA GENUAIR [Concomitant]
     Active Substance: ACLIDINIUM BROMIDE
  3. SINGULAIR [Concomitant]
     Active Substance: MONTELUKAST SODIUM
  4. AMOXICILLIN CLAVULANIC ACID [Concomitant]
     Active Substance: AMOXICILLIN\CLAVULANIC ACID
     Dosage: 875 MG/125 MG, BID
     Dates: start: 20191030
  5. HIZENTRA [Suspect]
     Active Substance: HUMAN IMMUNOGLOBULIN G
     Dosage: 3.5 GRAM (HALD OF DOSE- 7GRAM), TOT
     Route: 058
     Dates: start: 20191018, end: 20191018
  6. HIZENTRA [Suspect]
     Active Substance: HUMAN IMMUNOGLOBULIN G
     Dosage: UNK
     Route: 058
  7. PREDNISONE. [Concomitant]
     Active Substance: PREDNISONE
     Dosage: 20 MILLIGRAM (4 PILLS OF 5MG)
     Route: 065
  8. DILTIAZEM. [Concomitant]
     Active Substance: DILTIAZEM
  9. MIRTAZAPINE. [Concomitant]
     Active Substance: MIRTAZAPINE
  10. PANTOLOC CONTROL [Concomitant]
     Active Substance: PANTOPRAZOLE SODIUM
  11. HIZENTRA [Suspect]
     Active Substance: HUMAN IMMUNOGLOBULIN G
     Indication: PRIMARY IMMUNODEFICIENCY SYNDROME
     Dosage: 7 GRAM, QW
     Route: 058
     Dates: start: 20190815
  12. HIZENTRA [Suspect]
     Active Substance: HUMAN IMMUNOGLOBULIN G
     Dosage: UNK
     Route: 058
  13. HIZENTRA [Suspect]
     Active Substance: HUMAN IMMUNOGLOBULIN G
     Dosage: UNK
     Route: 058
  14. CITALOPRAM [Concomitant]
     Active Substance: CITALOPRAM HYDROBROMIDE
  15. RISEDRONATE [Concomitant]
     Active Substance: RISEDRONATE SODIUM
  16. UNIPHYL [Concomitant]
     Active Substance: THEOPHYLLINE ANHYDROUS
  17. HIZENTRA [Suspect]
     Active Substance: HUMAN IMMUNOGLOBULIN G
     Dosage: UNK
     Route: 058
  18. VENTOLIN [GUAIFENESIN;SALBUTAMOL SULFATE] [Concomitant]
     Active Substance: ALBUTEROL\GUAIFENESIN
     Indication: PREMEDICATION
     Route: 065
  19. ELIQUIS [Concomitant]
     Active Substance: APIXABAN
  20. PROBIOTICS NOS [Concomitant]
     Active Substance: PROBIOTICS NOS
  21. RIVOTRIL [Concomitant]
     Active Substance: CLONAZEPAM
  22. HIZENTRA [Suspect]
     Active Substance: HUMAN IMMUNOGLOBULIN G
     Dosage: UNK
     Route: 058
  23. BREO ELLIPTA [Concomitant]
     Active Substance: FLUTICASONE FUROATE\VILANTEROL TRIFENATATE
  24. PREDNISONE. [Concomitant]
     Active Substance: PREDNISONE
     Dosage: 40 MILLIGRAM (8 PILLS OF 5MG)
     Route: 065
  25. TOBRAMYCIN. [Concomitant]
     Active Substance: TOBRAMYCIN
     Indication: DYSPNOEA
     Dosage: 80 MILLIGRAM, BID
     Dates: start: 201912
  26. HIZENTRA [Suspect]
     Active Substance: HUMAN IMMUNOGLOBULIN G
     Dosage: UNK
     Route: 058
  27. CALCIUM [Concomitant]
     Active Substance: CALCIUM
  28. VITAMIN D [VITAMIN D NOS] [Concomitant]
     Active Substance: VITAMIN D NOS
  29. MULTIVITAMINES AND MINERALS [Concomitant]
     Active Substance: MINERALS\VITAMINS

REACTIONS (13)
  - Injection site erythema [Not Recovered/Not Resolved]
  - Asthenia [Not Recovered/Not Resolved]
  - Dyspnoea [Not Recovered/Not Resolved]
  - Dyspnoea [Not Recovered/Not Resolved]
  - Weight decreased [Not Recovered/Not Resolved]
  - Fatigue [Not Recovered/Not Resolved]
  - Fatigue [Not Recovered/Not Resolved]
  - Pyrexia [Recovered/Resolved]
  - Injection site swelling [Not Recovered/Not Resolved]
  - Bronchitis [Recovering/Resolving]
  - Injection site erythema [Unknown]
  - Cough [Not Recovered/Not Resolved]
  - Injection site erythema [Not Recovered/Not Resolved]

NARRATIVE: CASE EVENT DATE: 2019
